FAERS Safety Report 21895319 (Version 1)
Quarter: 2023Q1

REPORT INFORMATION
  Report Type: Other
  Country: GR (occurrence: None)
  Receive Date: 20230123
  Receipt Date: 20230123
  Transmission Date: 20230418
  Serious: Yes (Hospitalization)
  Sender: FDA-Public Use
  Company Number: GR-ROCHE-3267412

PATIENT
  Age: 73 Year
  Sex: Female

DRUGS (2)
  1. RITUXIMAB [Suspect]
     Active Substance: RITUXIMAB
     Indication: Rheumatoid arthritis
     Route: 065
  2. OBINUTUZUMAB [Concomitant]
     Active Substance: OBINUTUZUMAB

REACTIONS (1)
  - COVID-19 [Unknown]
